FAERS Safety Report 4346057-8 (Version None)
Quarter: 2004Q2

REPORT INFORMATION
  Report Type: 
  Country: None (occurrence: None)
  Receive Date: 20040421
  Receipt Date: 20040409
  Transmission Date: 20050107
  Serious: Yes (Death, Hospitalization, Other)
  Sender: FDA-Public Use
  Company Number: 04-120-0832

PATIENT
  Age: 50 Year
  Sex: Female
  Weight: 64.8644 kg

DRUGS (22)
  1. CISPLATIN [Suspect]
     Indication: OVARIAN EPITHELIAL CANCER RECURRENT
     Dosage: 50 MG IV
     Route: 042
     Dates: start: 20040109
  2. CISPLATIN [Suspect]
     Indication: OVARIAN EPITHELIAL CANCER STAGE III
     Dosage: 50 MG IV
     Route: 042
     Dates: start: 20040109
  3. CISPLATIN [Suspect]
     Indication: OVARIAN EPITHELIAL CANCER RECURRENT
     Dosage: 50 MG IV
     Route: 042
     Dates: start: 20041215
  4. CISPLATIN [Suspect]
     Indication: OVARIAN EPITHELIAL CANCER STAGE III
     Dosage: 50 MG IV
     Route: 042
     Dates: start: 20041215
  5. CISPLATIN [Suspect]
     Indication: OVARIAN EPITHELIAL CANCER RECURRENT
     Dosage: 50 MG IV
     Route: 042
     Dates: start: 20041222
  6. CISPLATIN [Suspect]
     Indication: OVARIAN EPITHELIAL CANCER STAGE III
     Dosage: 50 MG IV
     Route: 042
     Dates: start: 20041222
  7. ALOXI [Suspect]
     Indication: NAUSEA
     Dosage: 0.25 IVP
     Dates: start: 20040109
  8. ALOXI [Suspect]
     Indication: VOMITING
     Dosage: 0.25 IVP
     Dates: start: 20040109
  9. ALOXI [Suspect]
     Indication: NAUSEA
     Dosage: 0.25 IVP
     Dates: start: 20041215
  10. ALOXI [Suspect]
     Indication: VOMITING
     Dosage: 0.25 IVP
     Dates: start: 20041215
  11. ALOXI [Suspect]
     Indication: NAUSEA
     Dosage: 0.25 IVP
     Dates: start: 20041222
  12. ALOXI [Suspect]
     Indication: VOMITING
     Dosage: 0.25 IVP
     Dates: start: 20041222
  13. 1L NORMAL SALINE [Concomitant]
  14. ALOXI (PALONOSETRON) [Concomitant]
  15. DEXAMETHASONE [Concomitant]
  16. OXYCONTIN [Concomitant]
  17. ORAL LORAZEPAM [Concomitant]
  18. ORAL OMEPRAZOLE [Concomitant]
  19. EFFECOR [Concomitant]
  20. ORAL PROPOXYPHENE NAPSYLATE [Concomitant]
  21. ORAL SENEKOT [Concomitant]
  22. ORAL VENLAFAXINE [Concomitant]

REACTIONS (10)
  - ANAPHYLACTIC REACTION [None]
  - BLOOD ALKALINE PHOSPHATASE INCREASED [None]
  - BLOOD MAGNESIUM DECREASED [None]
  - DISEASE PROGRESSION [None]
  - HAEMATOCRIT DECREASED [None]
  - HYPOXIA [None]
  - NEUTROPHIL COUNT INCREASED [None]
  - PLATELET COUNT INCREASED [None]
  - RESPIRATORY FAILURE [None]
  - WHITE BLOOD CELL COUNT INCREASED [None]
